FAERS Safety Report 8001014-5 (Version None)
Quarter: 2011Q4

REPORT INFORMATION
  Report Type: 
  Country: None (occurrence: None)
  Receive Date: 20111222
  Receipt Date: 20110420
  Transmission Date: 20120403
  Serious: Yes (Other)
  Sender: FDA-Public Use
  Company Number: US-GLAXOSMITHKLINE-A0924498A

PATIENT
  Sex: Female

DRUGS (1)
  1. FLONASE [Suspect]
     Indication: MULTIPLE ALLERGIES
     Route: 065

REACTIONS (3)
  - MATERNAL EXPOSURE DURING PREGNANCY [None]
  - ANOSMIA [None]
  - AGEUSIA [None]
